FAERS Safety Report 5223948-7 (Version None)
Quarter: 2007Q1

REPORT INFORMATION
  Report Type: 
  Country: None (occurrence: None)
  Receive Date: 20070130
  Receipt Date: 20070122
  Transmission Date: 20070707
  Serious: Yes (Hospitalization)
  Sender: FDA-Public Use
  Company Number: FR-BRISTOL-MYERS SQUIBB COMPANY-13660691

PATIENT
  Age: 75 Year
  Sex: Male

DRUGS (7)
  1. ENDOXAN [Suspect]
     Indication: BURKITT'S LYMPHOMA
     Route: 042
     Dates: start: 20060930, end: 20061002
  2. METHOTREXATE [Suspect]
     Indication: BURKITT'S LYMPHOMA
     Dosage: METHOTREXATE DOSE WAS 3 G/M2
     Route: 042
     Dates: start: 20060929, end: 20060929
  3. DOXORUBICIN HCL [Suspect]
     Indication: BURKITT'S LYMPHOMA
     Route: 042
     Dates: start: 20060930, end: 20060930
  4. MABTHERA [Suspect]
     Indication: BURKITT'S LYMPHOMA
     Route: 042
     Dates: start: 20060928, end: 20061004
  5. PREDNISOLONE [Suspect]
     Indication: BURKITT'S LYMPHOMA
     Route: 048
     Dates: start: 20060929, end: 20061003
  6. ONCOVIN [Suspect]
     Indication: BURKITT'S LYMPHOMA
     Route: 042
     Dates: start: 20060929, end: 20060929
  7. OMEPRAZOLE [Concomitant]
     Dates: start: 20001005

REACTIONS (1)
  - FEBRILE NEUTROPENIA [None]
